FAERS Safety Report 9507539 (Version 2)
Quarter: 2013Q4

REPORT INFORMATION
  Report Type: Spontaneous
  Country: US (occurrence: None)
  Receive Date: 20130904
  Receipt Date: 20131011
  Transmission Date: 20140711
  Serious: Yes (Other)
  Sender: FDA-Public Use
  Company Number: 2013SA086112

PATIENT
  Age: 69 Year
  Sex: Female

DRUGS (1)
  1. ASPERCREME HEAT RELIEVING GEL [Suspect]
     Indication: MUSCLE STRAIN
     Dates: start: 20130827

REACTIONS (1)
  - Application site burn [None]
